FAERS Safety Report 4628044-5 (Version None)
Quarter: 2005Q2

REPORT INFORMATION
  Report Type: 
  Country: None (occurrence: None)
  Receive Date: 20050405
  Receipt Date: 20050405
  Transmission Date: 20051028
  Serious: No
  Sender: FDA-Public Use
  Company Number: None

PATIENT
  Age: 58 Year
  Sex: Female

DRUGS (1)
  1. CLOPIDOGREL [Suspect]
     Dosage: 75 MG QOD

REACTIONS (2)
  - HEPATITIS [None]
  - WEIGHT DECREASED [None]
